FAERS Safety Report 6010249-2 (Version None)
Quarter: 2008Q4

REPORT INFORMATION
  Report Type: 
  Country: None (occurrence: None)
  Receive Date: 20081218
  Receipt Date: 20080225
  Transmission Date: 20090506
  Serious: No
  Sender: FDA-Public Use
  Company Number: A0711629A

PATIENT
  Age: 45 Year
  Sex: Female

DRUGS (15)
  1. FLONASE [Suspect]
     Route: 045
  2. ASTELIN [Concomitant]
  3. PROTONIX [Concomitant]
  4. XOPENEX [Concomitant]
  5. ATROVENT [Concomitant]
  6. AMBIEN CR [Concomitant]
  7. CLONAZEPAM [Concomitant]
  8. FLEXERIL [Concomitant]
  9. ZOLOFT [Concomitant]
  10. IBUPROFEN [Concomitant]
  11. CALCIUM [Concomitant]
  12. ASCORBIC ACID [Concomitant]
  13. BIOTIN [Concomitant]
  14. MULTI-VITAMIN [Concomitant]
  15. STOOL SOFTENER [Concomitant]

REACTIONS (2)
  - DRUG INEFFECTIVE [None]
  - DYSPNOEA [None]
